FAERS Safety Report 18067073 (Version 1)
Quarter: 2020Q3

REPORT INFORMATION
  Report Type: Other
  Country: TR (occurrence: TR)
  Receive Date: 20200724
  Receipt Date: 20200724
  Transmission Date: 20201103
  Serious: No
  Sender: FDA-Public Use
  Company Number: TR-ROCHE-2461905

PATIENT
  Age: 52 Year
  Sex: Male
  Weight: 74 kg

DRUGS (19)
  1. OCRELIZUMAB. [Suspect]
     Active Substance: OCRELIZUMAB
     Dosage: VISIT 3?FORM STRENGTH (300 MG/250 ML)
     Route: 042
     Dates: start: 20190425, end: 20190425
  2. PREDNOL [METHYLPREDNISOLONE] [Concomitant]
     Indication: PREMEDICATION
     Route: 042
     Dates: start: 20190411, end: 20190411
  3. AVIL [Concomitant]
     Active Substance: PHENIRAMINE
     Route: 042
     Dates: start: 20190425, end: 20190425
  4. AVIL [Concomitant]
     Active Substance: PHENIRAMINE
     Route: 042
     Dates: start: 20191023, end: 20191023
  5. DRAMAMINE [Concomitant]
     Active Substance: DIMENHYDRINATE
     Indication: PREMEDICATION
     Route: 048
     Dates: start: 20190411, end: 20190411
  6. PARACETAMOL [Concomitant]
     Active Substance: ACETAMINOPHEN
     Indication: PREMEDICATION
     Route: 048
     Dates: start: 20190411, end: 20190411
  7. PARACETAMOL [Concomitant]
     Active Substance: ACETAMINOPHEN
     Route: 048
     Dates: start: 20190425, end: 20190425
  8. PREDNOL [METHYLPREDNISOLONE] [Concomitant]
     Route: 042
     Dates: start: 20191023, end: 20191023
  9. AVIL [Concomitant]
     Active Substance: PHENIRAMINE
     Indication: PREMEDICATION
     Route: 042
     Dates: start: 20190411, end: 20190411
  10. DRAMAMINE [Concomitant]
     Active Substance: DIMENHYDRINATE
     Route: 048
     Dates: start: 20190425, end: 20190425
  11. OCRELIZUMAB. [Suspect]
     Active Substance: OCRELIZUMAB
     Indication: MULTIPLE SCLEROSIS
     Dosage: VISIT 2?FORM STRENGTH (300 MG/250 ML)
     Route: 042
     Dates: start: 20190411, end: 20190411
  12. OCRELIZUMAB. [Suspect]
     Active Substance: OCRELIZUMAB
     Dosage: VISIT 4?FORM STRENGTH (300 MG/250 ML)
     Route: 042
     Dates: start: 20191023, end: 20191023
  13. DIDERAL [Concomitant]
     Active Substance: PROPRANOLOL HYDROCHLORIDE
     Route: 048
     Dates: start: 20190726
  14. PREDNOL [METHYLPREDNISOLONE] [Concomitant]
     Route: 042
     Dates: start: 20190425, end: 20190425
  15. PARACETAMOL [Concomitant]
     Active Substance: ACETAMINOPHEN
     Route: 048
     Dates: start: 20191023, end: 20191023
  16. FAMPYRA [Concomitant]
     Active Substance: DALFAMPRIDINE
     Route: 048
     Dates: start: 20190304
  17. DIDERAL [Concomitant]
     Active Substance: PROPRANOLOL HYDROCHLORIDE
     Indication: TREMOR
     Route: 048
     Dates: start: 20190304, end: 20190325
  18. CITOLES [Concomitant]
     Active Substance: ESCITALOPRAM OXALATE
     Indication: DEPRESSION
     Route: 048
     Dates: start: 20190726
  19. DRAMAMINE [Concomitant]
     Active Substance: DIMENHYDRINATE
     Route: 048
     Dates: start: 20191023, end: 20191023

REACTIONS (1)
  - Influenza [Recovered/Resolved]

NARRATIVE: CASE EVENT DATE: 20191021
